FAERS Safety Report 6850157-8 (Version None)
Quarter: 2010Q3

REPORT INFORMATION
  Report Type: 
  Country: None (occurrence: None)
  Receive Date: 20100716
  Receipt Date: 20071009
  Transmission Date: 20110219
  Serious: No
  Sender: FDA-Public Use
  Company Number: US-PFIZER INC-2007086503

PATIENT
  Sex: Male
  Weight: 79.5 kg

DRUGS (2)
  1. CHANTIX [Suspect]
     Indication: SMOKING CESSATION THERAPY
     Route: 048
     Dates: start: 20071006, end: 20071009
  2. METHADONE HCL [Concomitant]

REACTIONS (5)
  - AMNESIA [None]
  - HYPERHIDROSIS [None]
  - INFLUENZA LIKE ILLNESS [None]
  - PAIN [None]
  - PYREXIA [None]
